FAERS Safety Report 15620402 (Version 4)
Quarter: 2019Q3

REPORT INFORMATION
  Report Type: Spontaneous
  Country: FR (occurrence: FR)
  Receive Date: 20181115
  Receipt Date: 20190918
  Transmission Date: 20191004
  Serious: Yes (Life-Threatening, Other)
  Sender: FDA-Public Use
  Company Number: FR-SUN PHARMACEUTICAL INDUSTRIES LTD-2018RR-191108

PATIENT
  Age: 69 Year
  Sex: Male
  Weight: 66 kg

DRUGS (23)
  1. PREGABALIN. [Suspect]
     Active Substance: PREGABALIN
     Indication: PRODUCT USED FOR UNKNOWN INDICATION
     Dosage: 1 DF, 2/DAY
     Route: 065
  2. ZOPICLONE [Suspect]
     Active Substance: ZOPICLONE
     Indication: PRODUCT USED FOR UNKNOWN INDICATION
     Dosage: 1 DF, 1/DAY
     Route: 065
  3. TRAMADOL. [Suspect]
     Active Substance: TRAMADOL
     Indication: PAIN
     Dosage: 1 DOSAGE FORM, UNK
     Route: 048
     Dates: start: 201604
  4. BACLOFEN. [Suspect]
     Active Substance: BACLOFEN
     Dosage: 2 DF TID
     Route: 065
  5. NEOFORDEX [Suspect]
     Active Substance: DEXAMETHASONE ACETATE
     Indication: PRODUCT USED FOR UNKNOWN INDICATION
     Dosage: 1 DF, 1/WEEK
     Route: 065
  6. ELIQUIS [Suspect]
     Active Substance: APIXABAN
     Indication: PRODUCT USED FOR UNKNOWN INDICATION
     Dosage: 1 DOSAGE FORM, BID
     Route: 065
  7. PARACETAMOL [Suspect]
     Active Substance: ACETAMINOPHEN
     Indication: PRODUCT USED FOR UNKNOWN INDICATION
     Dosage: 1 DF, 3/DAY
     Route: 065
  8. VALACICLOVIR [Suspect]
     Active Substance: VALACYCLOVIR HYDROCHLORIDE
     Indication: INFECTION PROPHYLAXIS
     Dosage: 500 MILLIGRAM, DAILY
     Route: 048
  9. FOLIC ACID. [Suspect]
     Active Substance: FOLIC ACID
     Indication: PRODUCT USED FOR UNKNOWN INDICATION
     Dosage: UNK
     Route: 065
  10. LANSOPRAZOLE. [Suspect]
     Active Substance: LANSOPRAZOLE
     Indication: PRODUCT USED FOR UNKNOWN INDICATION
     Dosage: 1 DF, 1/DAY
     Route: 065
  11. TRAMADOL. [Suspect]
     Active Substance: TRAMADOL
     Dosage: 400 MILLIGRAM, QD
     Route: 048
     Dates: start: 201604, end: 201806
  12. PARACETAMOL [Suspect]
     Active Substance: ACETAMINOPHEN
     Dosage: 1 DF TID
     Route: 065
  13. PARACETAMOL [Suspect]
     Active Substance: ACETAMINOPHEN
     Dosage: 1 DOSAGE FORM, QD
     Route: 065
  14. BACTRIM [Suspect]
     Active Substance: SULFAMETHOXAZOLE\TRIMETHOPRIM
     Indication: PNEUMOCYSTIS JIROVECII PNEUMONIA
     Dosage: 1 DOSAGE FORM, QD
     Route: 048
     Dates: start: 201806
  15. APIXABAN [Suspect]
     Active Substance: APIXABAN
     Indication: PRODUCT USED FOR UNKNOWN INDICATION
     Dosage: 2 DOSAGE FORM, DAILY
     Route: 065
  16. AMOXICILLIN. [Suspect]
     Active Substance: AMOXICILLIN
     Indication: INFECTION
     Dosage: 1000 MILLIGRAM, DAILY
     Route: 048
  17. BACLOFEN. [Suspect]
     Active Substance: BACLOFEN
     Indication: PRODUCT USED FOR UNKNOWN INDICATION
     Dosage: 2 DF, 3/DAY
     Route: 065
  18. LACTULOSE. [Suspect]
     Active Substance: LACTULOSE
     Indication: PRODUCT USED FOR UNKNOWN INDICATION
     Dosage: 2 DF, 1/DAY
     Route: 065
  19. PREGABALIN. [Suspect]
     Active Substance: PREGABALIN
     Dosage: 1DF QD
     Route: 065
  20. PREGABALIN. [Suspect]
     Active Substance: PREGABALIN
     Dosage: 1 DF BID
     Route: 065
  21. VESICARE [Suspect]
     Active Substance: SOLIFENACIN SUCCINATE
     Indication: URINARY INCONTINENCE
     Dosage: 10 MILLIGRAM, DAILY
     Route: 048
  22. BACLOFEN. [Suspect]
     Active Substance: BACLOFEN
     Dosage: 1 DF BID
     Route: 065
  23. LACTULOSE. [Suspect]
     Active Substance: LACTULOSE
     Dosage: 2 DOSAGE FORM
     Route: 065

REACTIONS (9)
  - Overdose [Recovered/Resolved]
  - Confusional state [Recovered/Resolved]
  - Blood pressure decreased [Unknown]
  - Coma [Recovered/Resolved]
  - Epilepsy [Recovered/Resolved]
  - Drug intolerance [Unknown]
  - Overdose [Unknown]
  - Somnolence [Recovered/Resolved]
  - Off label use [Unknown]

NARRATIVE: CASE EVENT DATE: 20180607
